FAERS Safety Report 6128644-X (Version None)
Quarter: 2009Q1

REPORT INFORMATION
  Report Type: 
  Country: None (occurrence: None)
  Receive Date: 20090319
  Receipt Date: 20090304
  Transmission Date: 20090719
  Serious: Yes (Death)
  Sender: FDA-Public Use
  Company Number: JP-2008-0709

PATIENT
  Age: 58 Year
  Sex: Female

DRUGS (3)
  1. NAVELBINE [Suspect]
     Indication: BREAST CANCER
     Dosage: 30 MG IV
     Route: 042
     Dates: start: 20070724, end: 20070731
  2. FEMARA [Concomitant]
  3. AROMASIN [Concomitant]

REACTIONS (12)
  - ASPARTATE AMINOTRANSFERASE INCREASED [None]
  - BLOOD BILIRUBIN INCREASED [None]
  - BLOOD LACTATE DEHYDROGENASE INCREASED [None]
  - BREAST CANCER [None]
  - DIPLEGIA [None]
  - ERYTHROPENIA [None]
  - HAEMATOCRIT DECREASED [None]
  - LEUKOPENIA [None]
  - METASTASES TO SPINE [None]
  - NEUTROPENIA [None]
  - PYREXIA [None]
  - SEPSIS [None]
